FAERS Safety Report 11870397 (Version 1)
Quarter: 2015Q4

REPORT INFORMATION
  Report Type: Spontaneous
  Country: US (occurrence: None)
  Receive Date: 20151223
  Receipt Date: 20151223
  Transmission Date: 20160305
  Serious: No
  Sender: FDA-Public Use
  Company Number: None

PATIENT
  Age: 27 Year
  Sex: Female

DRUGS (5)
  1. ENTOCORT [Concomitant]
     Active Substance: BUDESONIDE
  2. VITAMIN D [Concomitant]
     Active Substance: CHOLECALCIFEROL
  3. XELJANZ [Suspect]
     Active Substance: TOFACITINIB CITRATE
     Indication: RHEUMATOID ARTHRITIS
     Route: 048
  4. MULTIVITAMIN [Concomitant]
     Active Substance: VITAMINS
  5. IRON [Concomitant]
     Active Substance: IRON

REACTIONS (2)
  - Nasopharyngitis [None]
  - Upper respiratory tract infection [None]

NARRATIVE: CASE EVENT DATE: 20151222
